FAERS Safety Report 7337034-3 (Version None)
Quarter: 2011Q1

REPORT INFORMATION
  Report Type: 
  Country: None (occurrence: None)
  Receive Date: 20110308
  Receipt Date: 20100108
  Transmission Date: 20110831
  Serious: No
  Sender: FDA-Public Use
  Company Number: US-BAYER-201010905NA

PATIENT
  Sex: Female

DRUGS (2)
  1. ZITHROMAX [Concomitant]
     Indication: SINUSITIS
     Dosage: UNK
  2. MIRENA [Suspect]
     Dosage: 20 ?G/D, CONT
     Route: 015

REACTIONS (1)
  - SINUSITIS [None]
